FAERS Safety Report 10285100 (Version 1)
Quarter: 2014Q3

REPORT INFORMATION
  Report Type: Spontaneous
  Country: US (occurrence: US)
  Receive Date: 20140708
  Receipt Date: 20140708
  Transmission Date: 20150326
  Serious: Yes (Other)
  Sender: FDA-Public Use
  Company Number: US-RB PHARMACEUTICALS LIMITED-RB-69010-2014

PATIENT

DRUGS (3)
  1. SUBOXONE [Suspect]
     Active Substance: BUPRENORPHINE HYDROCHLORIDE\NALOXONE HYDROCHLORIDE
     Indication: DRUG DEPENDENCE
     Dosage: UNKNOWN
     Route: 060
     Dates: end: 201309
  2. BUPRENORPHINE GENERIC TAB [Suspect]
     Active Substance: BUPRENORPHINE
     Indication: DRUG DEPENDENCE
     Dosage: 8 MG, TID.
     Route: 060
     Dates: start: 201309, end: 201405
  3. NICOTINE. [Concomitant]
     Active Substance: NICOTINE
     Indication: NICOTINE DEPENDENCE
     Dosage: E CIGARETTE
     Route: 055
     Dates: start: 2013, end: 2014

REACTIONS (7)
  - Anxiety [Recovered/Resolved]
  - Prolonged labour [Recovered/Resolved]
  - Caesarean section [None]
  - Self-medication [None]
  - Maternal exposure during pregnancy [Recovered/Resolved]
  - Pregnancy [None]
  - Convulsion [None]

NARRATIVE: CASE EVENT DATE: 201308
